FAERS Safety Report 25835811 (Version 1)
Quarter: 2025Q3

REPORT INFORMATION
  Report Type: Spontaneous
  Country: US (occurrence: US)
  Receive Date: 20250923
  Receipt Date: 20250923
  Transmission Date: 20251020
  Serious: Yes (Other)
  Sender: BAYER HEALTHCARE LLC
  Company Number: US-BAYER-2025A122955

PATIENT
  Sex: Female

DRUGS (3)
  1. ASPIRIN [Suspect]
     Active Substance: ASPIRIN
     Indication: Facial pain
     Dates: start: 200912
  2. ASPIRIN [Suspect]
     Active Substance: ASPIRIN
     Indication: Pain in extremity
  3. ASPIRIN [Suspect]
     Active Substance: ASPIRIN
     Indication: Myocardial infarction

REACTIONS (2)
  - Hyperhidrosis [Unknown]
  - Myocardial infarction [None]

NARRATIVE: CASE EVENT DATE: 20091201
